FAERS Safety Report 25527394 (Version 3)
Quarter: 2025Q3

REPORT INFORMATION
  Report Type: Report from Study
  Country: US (occurrence: US)
  Receive Date: 20250708
  Receipt Date: 20250822
  Transmission Date: 20251020
  Serious: Yes (Other)
  Sender: SUNOVION
  Company Number: US-SUMITOMO PHARMA SWITZERLAND GMBH-2025SPA007657

PATIENT
  Age: 68 Year
  Sex: Male

DRUGS (18)
  1. ORGOVYX [Suspect]
     Active Substance: RELUGOLIX
     Indication: Prostate cancer
     Route: 048
     Dates: start: 20250520, end: 20250520
  2. ORGOVYX [Suspect]
     Active Substance: RELUGOLIX
     Route: 048
  3. FLOMAX [Concomitant]
     Active Substance: TAMSULOSIN HYDROCHLORIDE
  4. FLUTICASONE FUROATE\SALMETEROL XINAFOATE [Concomitant]
     Active Substance: FLUTICASONE FUROATE\SALMETEROL XINAFOATE
  5. OZEMPIC [Concomitant]
     Active Substance: SEMAGLUTIDE
  6. SILDENAFIL CITRATE [Concomitant]
     Active Substance: SILDENAFIL CITRATE
  7. VITAMINS [Concomitant]
     Active Substance: VITAMINS
  8. ALBUTEROL SULFATE [Concomitant]
     Active Substance: ALBUTEROL SULFATE
  9. AMLODIPINE AND OLMESARTAN MEDOXOMIL [Concomitant]
     Active Substance: AMLODIPINE BESYLATE\OLMESARTAN MEDOXOMIL
  10. ASPIRIN [Concomitant]
     Active Substance: ASPIRIN
  11. ATORVASTATIN CALCIUM [Concomitant]
     Active Substance: ATORVASTATIN CALCIUM
  12. DICLOXACILLIN [Concomitant]
     Active Substance: DICLOXACILLIN
  13. TEGRETOL [Concomitant]
     Active Substance: CARBAMAZEPINE
  14. ABIRATERONE [Concomitant]
     Active Substance: ABIRATERONE
  15. NORCO [Concomitant]
     Active Substance: ACETAMINOPHEN\HYDROCODONE BITARTRATE
  16. MOTRIN IB [Concomitant]
     Active Substance: IBUPROFEN
  17. TYLENOL [Concomitant]
     Active Substance: ACETAMINOPHEN
  18. PREGABALIN [Concomitant]
     Active Substance: PREGABALIN

REACTIONS (4)
  - Lower respiratory tract infection [Unknown]
  - Trigeminal neuralgia [Unknown]
  - Hot flush [Unknown]
  - Fatigue [Unknown]
